FAERS Safety Report 5497945-0 (Version None)
Quarter: 2007Q4

REPORT INFORMATION
  Report Type: 
  Country: None (occurrence: None)
  Receive Date: 20071025
  Receipt Date: 20071017
  Transmission Date: 20080405
  Serious: Yes (Other)
  Sender: FDA-Public Use
  Company Number: US-PFIZER INC-2007088031

PATIENT
  Sex: Female
  Weight: 90.7 kg

DRUGS (2)
  1. DETROL [Suspect]
  2. LISINOPRIL [Concomitant]

REACTIONS (1)
  - GOUT [None]
